FAERS Safety Report 7568058-9 (Version None)
Quarter: 2011Q2

REPORT INFORMATION
  Report Type: 
  Country: None (occurrence: None)
  Receive Date: 20110623
  Receipt Date: 20110622
  Transmission Date: 20111010
  Serious: Yes (Other)
  Sender: FDA-Public Use
  Company Number: GB-EISAI INC-E2020-09341-SPO-GB

PATIENT
  Age: 78 Year
  Sex: Female

DRUGS (11)
  1. ARICEPT [Suspect]
     Route: 048
  2. ASPIRIN [Concomitant]
  3. ADCAL-D3 [Concomitant]
  4. INDAPAMIDE [Concomitant]
  5. ATENOLOL [Concomitant]
  6. ENOXAPARIN [Concomitant]
  7. IRBESARTAN [Concomitant]
  8. SIMVASTATIN [Concomitant]
  9. ALENDRONIC ACID [Concomitant]
  10. LEVOTHYROXINE SODIUM [Concomitant]
  11. OMEPRAZOLE [Concomitant]

REACTIONS (2)
  - BUNDLE BRANCH BLOCK LEFT [None]
  - ELECTROCARDIOGRAM QT PROLONGED [None]
